FAERS Safety Report 24222866 (Version 2)
Quarter: 2024Q4

REPORT INFORMATION
  Report Type: Spontaneous
  Country: IN (occurrence: IN)
  Receive Date: 20240819
  Receipt Date: 20241230
  Transmission Date: 20250115
  Serious: Yes (Other)
  Sender: PFIZER
  Company Number: IN-PFIZER INC-PV202200132483

PATIENT
  Age: 62 Year
  Sex: Male

DRUGS (3)
  1. INLYTA [Suspect]
     Active Substance: AXITINIB
     Indication: Metastatic renal cell carcinoma
     Dosage: 5 MG, 2X/DAY
     Route: 048
  2. INLYTA [Suspect]
     Active Substance: AXITINIB
     Dosage: 5 MG, 1X/DAY
     Route: 048
  3. BAVENCIO [Concomitant]
     Active Substance: AVELUMAB
     Indication: Metastatic renal cell carcinoma
     Dosage: 800 MG, CYCLIC (Q 2WEEKS)

REACTIONS (2)
  - Poisoning [Unknown]
  - Off label use [Unknown]
